FAERS Safety Report 18072147 (Version 3)
Quarter: 2021Q1

REPORT INFORMATION
  Report Type: Other
  Country: US (occurrence: US)
  Receive Date: 20200727
  Receipt Date: 20210126
  Transmission Date: 20210419
  Serious: Yes (Hospitalization)
  Sender: FDA-Public Use
  Company Number: US-INTERCEPT-PM2020001508

PATIENT
  Age: 73 Year
  Sex: Female

DRUGS (8)
  1. PROLIA [Concomitant]
     Active Substance: DENOSUMAB
  2. VITAMIN D [Concomitant]
     Active Substance: VITAMIN D NOS
  3. URSODIOL. [Concomitant]
     Active Substance: URSODIOL
  4. CALCIUM [Concomitant]
     Active Substance: CALCIUM
  5. OCALIVA [Suspect]
     Active Substance: OBETICHOLIC ACID
     Dosage: 10 MILLIGRAM
     Route: 048
     Dates: start: 202011
  6. OCALIVA [Suspect]
     Active Substance: OBETICHOLIC ACID
     Indication: PRIMARY BILIARY CHOLANGITIS
     Dosage: 5 MILLIGRAM, QD
     Route: 048
     Dates: start: 20161022
  7. OCALIVA [Suspect]
     Active Substance: OBETICHOLIC ACID
     Dosage: 10 MILLIGRAM, QD
     Route: 048
     Dates: end: 202006
  8. MULTIVITAMIN                       /00097801/ [Concomitant]
     Active Substance: VITAMINS

REACTIONS (5)
  - Cancer surgery [Recovered/Resolved]
  - Unevaluable event [Not Recovered/Not Resolved]
  - Tongue neoplasm malignant stage unspecified [Unknown]
  - Therapy interrupted [Recovered/Resolved]
  - Oral surgery [Recovered/Resolved]

NARRATIVE: CASE EVENT DATE: 2020
